FAERS Safety Report 9078594 (Version 1)
Quarter: 2013Q1

REPORT INFORMATION
  Report Type: Report from Study
  Country: US (occurrence: US)
  Receive Date: 20130130
  Receipt Date: 20130130
  Transmission Date: 20140127
  Serious: No
  Sender: FDA-Public Use
  Company Number: US-ABBOTT-12P-163-0960367-00

PATIENT
  Age: 53 Year
  Sex: Male

DRUGS (2)
  1. HUMIRA 40 MG/0.8 ML PEN [Suspect]
     Indication: PYODERMA GANGRENOSUM
     Dates: start: 201108
  2. IBUPROFEN [Concomitant]
     Indication: PAIN

REACTIONS (2)
  - Pyoderma gangrenosum [Not Recovered/Not Resolved]
  - Rash [Not Recovered/Not Resolved]
